FAERS Safety Report 7106831-1 (Version None)
Quarter: 2010Q4

REPORT INFORMATION
  Report Type: 
  Country: None (occurrence: None)
  Receive Date: 20101116
  Receipt Date: 20101029
  Transmission Date: 20110411
  Serious: No
  Sender: FDA-Public Use
  Company Number: US-ABBOTT-10P-163-0682365-00

PATIENT
  Sex: Female
  Weight: 75.818 kg

DRUGS (7)
  1. SIMCOR [Suspect]
     Indication: BLOOD CHOLESTEROL INCREASED
     Dates: start: 20100805, end: 20100809
  2. SIMCOR [Suspect]
     Dates: start: 20100812, end: 20100816
  3. VERAPAMIL [Concomitant]
     Indication: HYPERTENSION
  4. UNKNOWN STOMACH MEDICATION [Concomitant]
     Indication: GASTRIC ULCER
  5. ALLERGY MEDICATION [Concomitant]
     Indication: HYPERSENSITIVITY
  6. EVISTA [Concomitant]
     Indication: OSTEOPOROSIS
  7. LOVAZA [Concomitant]
     Indication: MEDICAL DIET

REACTIONS (7)
  - BLOOD GLUCOSE INCREASED [None]
  - EYE SWELLING [None]
  - LIP SWELLING [None]
  - PRURITUS GENERALISED [None]
  - SKIN BURNING SENSATION [None]
  - SWOLLEN TONGUE [None]
  - URTICARIA [None]
